FAERS Safety Report 7804041-3 (Version None)
Quarter: 2011Q4

REPORT INFORMATION
  Report Type: 
  Country: None (occurrence: None)
  Receive Date: 20111010
  Receipt Date: 20110928
  Transmission Date: 20120403
  Serious: Yes (Hospitalization)
  Sender: FDA-Public Use
  Company Number: FR-JNJFOC-20100905128

PATIENT
  Sex: Female

DRUGS (4)
  1. ACETAMINOPHEN AND TRAMADOL HCL [Suspect]
     Indication: OSTEOARTHRITIS
     Dosage: 1 TO 4 TABLETS DAILY, AS NEEDED
     Route: 048
     Dates: start: 20100803, end: 20100822
  2. VALSARTAN [Concomitant]
  3. KETOPROFEN [Suspect]
     Indication: OSTEOARTHRITIS
     Route: 003
     Dates: start: 20100803, end: 20100805
  4. ZOCOR [Concomitant]

REACTIONS (4)
  - PYREXIA [None]
  - ERYTHEMA MULTIFORME [None]
  - APPLICATION SITE RASH [None]
  - ORAL DISORDER [None]
